FAERS Safety Report 8480164-3 (Version None)
Quarter: 2012Q2

REPORT INFORMATION
  Report Type: 
  Country: None (occurrence: None)
  Receive Date: 20120629
  Receipt Date: 20120628
  Transmission Date: 20120825
  Serious: Yes (Congenital Anomaly)
  Sender: FDA-Public Use
  Company Number: US-MERCK-1112USA00736B1

PATIENT
  Sex: Female

DRUGS (2)
  1. DULERA [Suspect]
     Route: 064
  2. SINGULAIR [Suspect]
     Indication: ASTHMA
     Route: 064
     Dates: start: 20091201, end: 20111115

REACTIONS (3)
  - CONGENITAL NAEVUS [None]
  - PREMATURE BABY [None]
  - FOETAL EXPOSURE DURING PREGNANCY [None]
